FAERS Safety Report 4880421-3 (Version None)
Quarter: 2006Q1

REPORT INFORMATION
  Report Type: 
  Country: None (occurrence: None)
  Receive Date: 20060113
  Receipt Date: 20051031
  Transmission Date: 20060701
  Serious: Yes (Life-Threatening)
  Sender: FDA-Public Use
  Company Number: FR-ABBOTT-05P-056-0316043-00

PATIENT
  Sex: Male
  Weight: 3.37 kg

DRUGS (1)
  1. DEPAKENE [Suspect]
     Indication: DRUG EXPOSURE DURING PREGNANCY

REACTIONS (5)
  - DRUG EXPOSURE DURING PREGNANCY [None]
  - HYPOGLYCAEMIA NEONATAL [None]
  - NECROTISING ENTEROCOLITIS NEONATAL [None]
  - THROMBOCYTOPENIA NEONATAL [None]
  - TREMOR [None]
